FAERS Safety Report 23152825 (Version 1)
Quarter: 2023Q4

REPORT INFORMATION
  Report Type: Spontaneous
  Country: US (occurrence: US)
  Receive Date: 20231107
  Receipt Date: 20231107
  Transmission Date: 20240109
  Serious: Yes (Other)
  Sender: FDA-Public Use
  Company Number: US-SA-SAC20231031000978

PATIENT
  Sex: Female

DRUGS (5)
  1. RIFAMPIN [Suspect]
     Active Substance: RIFAMPIN
     Dosage: UNK
     Route: 065
  2. AZITHROMYCIN [Concomitant]
     Active Substance: AZITHROMYCIN
     Dosage: UNK
  3. RIFAMPIN [Concomitant]
     Active Substance: RIFAMPIN
     Dosage: UNK
  4. ETHAMBUTOL [Concomitant]
     Active Substance: ETHAMBUTOL HYDROCHLORIDE
     Dosage: UNK
  5. AMIKACIN [Concomitant]
     Active Substance: AMIKACIN
     Dosage: UNK

REACTIONS (1)
  - Deafness [Unknown]
